FAERS Safety Report 10375243 (Version 1)
Quarter: 2014Q3

REPORT INFORMATION
  Report Type: Spontaneous
  Country: US (occurrence: None)
  Receive Date: 20140808
  Receipt Date: 20140808
  Transmission Date: 20150326
  Serious: Yes (Disabling, Other)
  Sender: FDA-Public Use
  Company Number: None

PATIENT
  Age: 58 Year
  Sex: Male
  Weight: 63.5 kg

DRUGS (1)
  1. PROAIR HFA [Suspect]
     Active Substance: ALBUTEROL SULFATE
     Indication: ASTHMA
     Dosage: 6921706 1-2 PUFFS 4 HRS AS INHALATION
     Route: 055
     Dates: start: 20140804, end: 20140806

REACTIONS (7)
  - Pharyngeal oedema [None]
  - Chest pain [None]
  - Asthma [None]
  - Rhinorrhoea [None]
  - Product substitution issue [None]
  - Condition aggravated [None]
  - Chronic obstructive pulmonary disease [None]

NARRATIVE: CASE EVENT DATE: 20140804
